FAERS Safety Report 7123824-9 (Version None)
Quarter: 2010Q4

REPORT INFORMATION
  Report Type: 
  Country: None (occurrence: None)
  Receive Date: 20101125
  Receipt Date: 20101118
  Transmission Date: 20110411
  Serious: Yes (Life-Threatening)
  Sender: FDA-Public Use
  Company Number: PHHY2010CA78562

PATIENT
  Sex: Female

DRUGS (2)
  1. ZOMETA [Suspect]
     Indication: BREAST CANCER
     Dosage: 4MG EVERY 6 MONTHS
     Dates: start: 20091223
  2. CIPRALEX [Concomitant]
     Dosage: 5 MG, UNK
     Route: 048

REACTIONS (3)
  - CRYING [None]
  - FEELING ABNORMAL [None]
  - SUICIDAL IDEATION [None]
